FAERS Safety Report 20877762 (Version 1)
Quarter: 2022Q2

REPORT INFORMATION
  Report Type: Spontaneous
  Country: US (occurrence: US)
  Receive Date: 20220526
  Receipt Date: 20220526
  Transmission Date: 20220721
  Serious: No
  Sender: FDA-Public Use
  Company Number: US-NOVARTISTESTPH-NVSC2022US121628

PATIENT
  Sex: Female

DRUGS (1)
  1. KYMRIAH [Suspect]
     Active Substance: TISAGENLECLEUCEL
     Indication: Product used for unknown indication
     Dosage: (1.8E8 CAR-POSITIVE VIABLE T-CELLS), ONCE/SINGLE
     Route: 042
     Dates: start: 20220418, end: 20220418

REACTIONS (1)
  - Therapy non-responder [Unknown]
